FAERS Safety Report 23295101 (Version 1)
Quarter: 2023Q4

REPORT INFORMATION
  Report Type: Spontaneous
  Country: CN (occurrence: None)
  Receive Date: 20231213
  Receipt Date: 20231213
  Transmission Date: 20240109
  Serious: Yes (Other)
  Sender: FDA-Public Use
  Company Number: 2023A278590

PATIENT
  Age: 55 Year
  Sex: Male
  Weight: 60 kg

DRUGS (1)
  1. DAPAGLIFLOZIN [Suspect]
     Active Substance: DAPAGLIFLOZIN
     Indication: Blood glucose
     Dosage: FIVE TIMES EVERY FIVE DAYS.
     Route: 048
     Dates: start: 20231015, end: 20231019

REACTIONS (8)
  - Dyspnoea [Recovering/Resolving]
  - Rales [Unknown]
  - Blood pH decreased [Unknown]
  - PCO2 decreased [Unknown]
  - Blood glucose increased [Unknown]
  - Respiratory alkalosis [Unknown]
  - Metabolic acidosis [Unknown]
  - Diabetic ketoacidosis [Unknown]

NARRATIVE: CASE EVENT DATE: 20231019
